FAERS Safety Report 25710556 (Version 1)
Quarter: 2025Q3

REPORT INFORMATION
  Report Type: Spontaneous
  Country: US (occurrence: None)
  Receive Date: 20250820
  Receipt Date: 20250820
  Transmission Date: 20251021
  Serious: Yes (Hospitalization, Disabling, Other)
  Sender: FDA-CTU
  Company Number: None

PATIENT
  Age: 95 Year
  Sex: Male
  Weight: 49.5 kg

DRUGS (11)
  1. RECLAST [Suspect]
     Active Substance: ZOLEDRONIC ACID
     Indication: Osteoporosis
     Dates: start: 20250804, end: 20250804
  2. LOSARTAN [Concomitant]
     Active Substance: LOSARTAN
  3. TAMSULOSIN [Concomitant]
     Active Substance: TAMSULOSIN
  4. MIRABEGRON [Concomitant]
     Active Substance: MIRABEGRON
  5. METHENAMINE HIPPURATE [Concomitant]
     Active Substance: METHENAMINE HIPPURATE
  6. DONEPEZIL [Concomitant]
     Active Substance: DONEPEZIL
  7. MEMANTINE [Concomitant]
     Active Substance: MEMANTINE
  8. PROLIA [Concomitant]
     Active Substance: DENOSUMAB
  9. reclast infusion on 8-4-25 [Concomitant]
  10. VITAMINS [Concomitant]
     Active Substance: VITAMINS
  11. calcium/vitamin D supplement [Concomitant]

REACTIONS (7)
  - Infusion related reaction [None]
  - Vomiting [None]
  - Gait disturbance [None]
  - Tremor [None]
  - Hypertension [None]
  - Pyrexia [None]
  - Gout [None]

NARRATIVE: CASE EVENT DATE: 20250819
